FAERS Safety Report 7755736-1 (Version None)
Quarter: 2011Q3

REPORT INFORMATION
  Report Type: 
  Country: None (occurrence: None)
  Receive Date: 20110916
  Receipt Date: 20110909
  Transmission Date: 20111222
  Serious: Yes (Other)
  Sender: FDA-Public Use
  Company Number: PHEH2011US03790

PATIENT
  Sex: Female

DRUGS (3)
  1. ACTONEL [Suspect]
  2. RECLAST [Suspect]
     Route: 042
  3. FOSAMAX [Suspect]

REACTIONS (2)
  - FEMUR FRACTURE [None]
  - ARTHRALGIA [None]
